FAERS Safety Report 10223088 (Version 2)
Quarter: 2014Q2

REPORT INFORMATION
  Report Type: Spontaneous
  Country: US (occurrence: None)
  Receive Date: 20140605
  Receipt Date: 20140613
  Transmission Date: 20141212
  Serious: Yes (Disabling, Other)
  Sender: FDA-Public Use
  Company Number: KAD201405-000572

PATIENT
  Age: 49 Year
  Sex: Male

DRUGS (4)
  1. RIBAVIRIN [Suspect]
     Indication: HEPATITIS C
     Route: 048
  2. PEGINTERFERON ALFA-2A [Suspect]
     Indication: HEPATITIS C
  3. SOFOSBUVIR (SOFOSBUVIR) [Suspect]
     Indication: HEPATITIS C
     Route: 048
  4. TACROLIMUS (TACROLIMUS) [Suspect]
     Indication: IMMUNOSUPPRESSION

REACTIONS (8)
  - Fatigue [None]
  - Jaundice [None]
  - Condition aggravated [None]
  - Abdominal discomfort [None]
  - Hepatitis C [None]
  - Oedema peripheral [None]
  - Ascites [None]
  - Hepatitis cholestatic [None]
